FAERS Safety Report 14830727 (Version 2)
Quarter: 2020Q1

REPORT INFORMATION
  Report Type: Spontaneous
  Country: US (occurrence: US)
  Receive Date: 20180430
  Receipt Date: 20200108
  Transmission Date: 20200409
  Serious: No
  Sender: FDA-Public Use
  Company Number: US-SA-2018SA098102

PATIENT
  Age: 69 Year
  Sex: Female

DRUGS (12)
  1. DIOVAN [Concomitant]
     Active Substance: VALSARTAN
  2. VITAMIN D3 [Concomitant]
     Active Substance: CHOLECALCIFEROL
  3. COENZYME Q10 [Concomitant]
     Active Substance: UBIDECARENONE
  4. EZETIMIBE. [Concomitant]
     Active Substance: EZETIMIBE
  5. METOPROLOL SUCCINATE. [Concomitant]
     Active Substance: METOPROLOL SUCCINATE
  6. PRALUENT [Suspect]
     Active Substance: ALIROCUMAB
     Indication: TYPE V HYPERLIPIDAEMIA
     Dosage: 75 MG,QOW
     Route: 058
     Dates: start: 201711
  7. ASPIRIN (E.C.) [Concomitant]
     Active Substance: ASPIRIN
     Dosage: 81 MG
  8. PRALUENT [Suspect]
     Active Substance: ALIROCUMAB
     Indication: MYOCARDIAL ISCHAEMIA
     Dosage: 75 MG, QM
  9. CALTRATE WITH VITAMIN D [Concomitant]
     Active Substance: CALCIUM CARBONATE\CHOLECALCIFEROL
  10. VITAMIN C ACID [Concomitant]
     Active Substance: ASCORBIC ACID
  11. CENTRUM SILVER [ASCORBIC ACID;BETACAROTENE;BIOTIN;CALCIUM;CHROMIUM;COL [Concomitant]
  12. CRESTOR [Concomitant]
     Active Substance: ROSUVASTATIN CALCIUM

REACTIONS (11)
  - Injection site bruising [Unknown]
  - Product use issue [Unknown]
  - Arthralgia [Unknown]
  - Lymphadenopathy [Unknown]
  - Oropharyngeal pain [Unknown]
  - Headache [Unknown]
  - Pain [Unknown]
  - Nasal congestion [Unknown]
  - Musculoskeletal pain [Unknown]
  - Joint noise [Unknown]
  - Bronchitis [Unknown]

NARRATIVE: CASE EVENT DATE: 20180308
